FAERS Safety Report 8917993 (Version 2)
Quarter: 2013Q1

REPORT INFORMATION
  Report Type: Report from Study
  Country: GB (occurrence: GB)
  Receive Date: 20121120
  Receipt Date: 20130111
  Transmission Date: 20140127
  Serious: Yes (Hospitalization)
  Sender: FDA-Public Use
  Company Number: GB-009507513-1211GBR007332

PATIENT
  Age: 86 Year
  Sex: Female
  Weight: 68 kg

DRUGS (3)
  1. DEXAMETHASONE TABLETS BP 500MCG [Suspect]
     Dosage: 0.5 MG, QD
     Route: 048
     Dates: start: 20120920, end: 20121107
  2. ABIRATERONE ACETATE [Suspect]
     Indication: BREAST CANCER METASTATIC
     Dosage: 1000 MG, QD, CONTINUOUS 28/DAY CYCLE
     Route: 048
     Dates: start: 20120830, end: 20121105
  3. HYDROCORTISONE [Concomitant]
     Indication: HYPOKALAEMIA

REACTIONS (1)
  - Herpes zoster [Recovering/Resolving]
